FAERS Safety Report 25033088 (Version 1)
Quarter: 2025Q1

REPORT INFORMATION
  Report Type: Spontaneous
  Country: US (occurrence: US)
  Receive Date: 20250303
  Receipt Date: 20250303
  Transmission Date: 20250408
  Serious: No
  Sender: ABBVIE
  Company Number: US-ABBVIE-6158828

PATIENT
  Sex: Female

DRUGS (2)
  1. BOTOX [Suspect]
     Active Substance: ONABOTULINUMTOXINA
     Indication: Dyskinesia
     Route: 030
     Dates: start: 202407, end: 202407
  2. BOTOX [Suspect]
     Active Substance: ONABOTULINUMTOXINA
     Indication: Dyskinesia
     Route: 030
     Dates: start: 20240225, end: 20240225

REACTIONS (3)
  - Balance disorder [Unknown]
  - Drug ineffective [Not Recovered/Not Resolved]
  - Arthropathy [Unknown]
